FAERS Safety Report 7818983-6 (Version None)
Quarter: 2011Q4

REPORT INFORMATION
  Report Type: 
  Country: None (occurrence: None)
  Receive Date: 20111012
  Receipt Date: 20110930
  Transmission Date: 20120403
  Serious: Yes (Life-Threatening, Hospitalization, Other)
  Sender: FDA-Public Use
  Company Number: AUR-APL-2009-01410

PATIENT
  Age: 55 Year
  Sex: Female

DRUGS (11)
  1. MAGNESIUM (MAGNESIUM) [Suspect]
     Indication: PRODUCT USED FOR UNKNOWN INDICATION
     Dosage: 7.5 MG (7.5 MG,1 IN 1 D)
  2. LORAZEPAM [Suspect]
     Indication: PRODUCT USED FOR UNKNOWN INDICATION
     Dosage: 4 MG (4 MG,1 IN 1 D) ; 3 MG (3 MG,1 IN 1 D) ; 2 MG (2 MG,1 IN 1 D)
  3. ARIPIPRAZOLE [Suspect]
     Indication: PSYCHOTIC DISORDER
     Dosage: 60 MG (60 MG,1 IN 1 D) ; 45 MG (45 MG,1 IN 1 D) ; 30 MG (30 MG,1 IN 1 D) ; DOSE HALVED (2 D)
  4. PRAVASTATIN [Suspect]
     Indication: PRODUCT USED FOR UNKNOWN INDICATION
  5. LEVOTHYROXINE SODIUM [Suspect]
     Indication: PRODUCT USED FOR UNKNOWN INDICATION
     Dosage: 0.05 MG (0.05 MG,1 IN 1 D)
  6. QUETIAPINE FUMARATE [Suspect]
     Indication: PRODUCT USED FOR UNKNOWN INDICATION
     Dosage: 200 MG (200 MG,1 IN 1 D)
  7. BETAMETHASONE [Suspect]
     Indication: PRODUCT USED FOR UNKNOWN INDICATION
  8. LITHIUM CARBONATE [Suspect]
     Indication: PRODUCT USED FOR UNKNOWN INDICATION
     Dosage: 625 MG (625 MG,1 IN 1 D) ; 900 MG (900 MG,1 IN 1 D)
  9. SERTRALINE HYDROCHLORIDE [Suspect]
     Indication: DEPRESSION
     Dosage: 100 MG (100 MG,1 IN 1 D) ; 150  MG (150 MG,1 IN 1 D) ; 200 MG (200 MG,1 IN 1 D)
  10. OLANZAPINE [Suspect]
     Indication: PSYCHOTIC DISORDER
     Dosage: 10 MG (10 MG,1 IN 1 D)
  11. RISPERIDONE [Suspect]
     Indication: PSYCHOTIC DISORDER
     Dosage: 1 MG (1 MG,1 IN 1 D)

REACTIONS (19)
  - SUICIDE ATTEMPT [None]
  - WEIGHT INCREASED [None]
  - ECZEMA [None]
  - ANTIPSYCHOTIC DRUG LEVEL BELOW THERAPEUTIC [None]
  - PSYCHOTIC DISORDER [None]
  - EOSINOPHILIA [None]
  - DEPRESSION [None]
  - RASH PRURITIC [None]
  - EYE PRURITUS [None]
  - DRUG HYPERSENSITIVITY [None]
  - SEDATION [None]
  - PIGMENTATION DISORDER [None]
  - TREATMENT NONCOMPLIANCE [None]
  - FATIGUE [None]
  - SKIN LESION [None]
  - HALLUCINATION, AUDITORY [None]
  - HYPERLIPIDAEMIA [None]
  - DRUG INEFFECTIVE [None]
  - CONDITION AGGRAVATED [None]
